FAERS Safety Report 14191309 (Version 1)
Quarter: 2017Q4

REPORT INFORMATION
  Report Type: Spontaneous
  Country: HU (occurrence: HU)
  Receive Date: 20171115
  Receipt Date: 20171115
  Transmission Date: 20180321
  Serious: Yes (Other)
  Sender: FDA-Public Use
  Company Number: HU-PFIZER INC-2017431098

PATIENT
  Age: 69 Year
  Sex: Female

DRUGS (4)
  1. BOSULIF [Suspect]
     Active Substance: BOSUTINIB MONOHYDRATE
     Indication: CHRONIC MYELOID LEUKAEMIA
     Dosage: 500 MG, ONCE A DAY
     Dates: start: 20170517
  2. BOSULIF [Suspect]
     Active Substance: BOSUTINIB MONOHYDRATE
     Dosage: 100 MG, ONCE A DAY
     Dates: start: 20170705
  3. LOPEDIUM [Concomitant]
     Active Substance: LOPERAMIDE
     Dosage: 1 DF, 3X/DAY
  4. GLIVEC [Suspect]
     Active Substance: IMATINIB MESYLATE
     Indication: CHRONIC MYELOID LEUKAEMIA
     Dosage: 400 MG, 1X/DAY (1X400 MG/DAY)
     Route: 048

REACTIONS (2)
  - Nausea [Unknown]
  - Muscle spasms [Unknown]
